FAERS Safety Report 5093599-6 (Version None)
Quarter: 2006Q3

REPORT INFORMATION
  Report Type: 
  Country: None (occurrence: None)
  Receive Date: 20060829
  Receipt Date: 20060818
  Transmission Date: 20061208
  Serious: Yes (Life-Threatening, Hospitalization)
  Sender: FDA-Public Use
  Company Number: T200600914

PATIENT
  Age: 59 Year
  Sex: Female

DRUGS (3)
  1. OPTIRAY 350 [Suspect]
     Indication: CATHETERISATION CARDIAC
     Dosage: 157 ML, SINGLE, INTRA-ARTERIAL
     Route: 013
     Dates: start: 20060817, end: 20060817
  2. HEPARIN [Concomitant]
  3. CHEMOTHERAPEUTICS NOS [Concomitant]

REACTIONS (3)
  - ACTIVATED PARTIAL THROMBOPLASTIN TIME PROLONGED [None]
  - RETROPERITONEAL HAEMORRHAGE [None]
  - SURGERY [None]
